FAERS Safety Report 6034805-0 (Version None)
Quarter: 2009Q1

REPORT INFORMATION
  Report Type: 
  Country: None (occurrence: None)
  Receive Date: 20090112
  Receipt Date: 20090105
  Transmission Date: 20090719
  Serious: Yes (Hospitalization, Other)
  Sender: FDA-Public Use
  Company Number: US-ELI_LILLY_AND_COMPANY-US200901000275

PATIENT
  Sex: Female

DRUGS (12)
  1. FORTEO [Suspect]
     Dates: start: 20071001
  2. PREDNISONE TAB [Concomitant]
  3. IRON [Concomitant]
  4. PRILOSEC [Concomitant]
  5. ASPIRIN [Concomitant]
     Dosage: 81 MG, DAILY (1/D)
  6. XANAX [Concomitant]
  7. TRAMADOL HCL [Concomitant]
     Indication: PAIN
  8. TRAZODONE HCL [Concomitant]
     Indication: SLEEP DISORDER
  9. PRAVASTATIN [Concomitant]
     Indication: BLOOD CHOLESTEROL
  10. BUMEX [Concomitant]
     Indication: FLUID RETENTION
  11. ALBUTEROL SULFATE [Concomitant]
     Dosage: UNK, AS NEEDED
  12. MIRTAZAPINE [Concomitant]
     Indication: SLEEP DISORDER

REACTIONS (5)
  - ANAEMIA [None]
  - CATARACT [None]
  - DYSPNOEA [None]
  - GLAUCOMA [None]
  - INTRAOCULAR PRESSURE INCREASED [None]
